APPROVED DRUG PRODUCT: FLUOCINONIDE EMULSIFIED BASE
Active Ingredient: FLUOCINONIDE
Strength: 0.05%
Dosage Form/Route: CREAM;TOPICAL
Application: A072494 | Product #001 | TE Code: AB2
Applicant: TARO PHARMACEUTICAL INDUSTRIES LTD
Approved: Jan 19, 1989 | RLD: No | RS: Yes | Type: RX